FAERS Safety Report 12505983 (Version 1)
Quarter: 2016Q2

REPORT INFORMATION
  Report Type: Spontaneous
  Country: US (occurrence: US)
  Receive Date: 20160628
  Receipt Date: 20160628
  Transmission Date: 20160815
  Serious: No
  Sender: FDA-Public Use
  Company Number: US-ELI_LILLY_AND_COMPANY-US201606008857

PATIENT
  Sex: Female

DRUGS (7)
  1. HUMALOG [Suspect]
     Active Substance: INSULIN LISPRO
     Indication: TYPE 2 DIABETES MELLITUS
     Dosage: 15 U, BID
     Route: 065
     Dates: start: 2012
  2. HUMALOG [Suspect]
     Active Substance: INSULIN LISPRO
     Dosage: 25 U, EACH EVENING
     Route: 065
     Dates: start: 2012
  3. HUMALOG [Suspect]
     Active Substance: INSULIN LISPRO
     Dosage: 15 U, BID
     Route: 065
     Dates: start: 2012
  4. HUMALOG [Suspect]
     Active Substance: INSULIN LISPRO
     Dosage: 25 U, EACH EVENING
     Route: 065
     Dates: start: 2012
  5. HUMALOG [Suspect]
     Active Substance: INSULIN LISPRO
     Dosage: 25 U, EACH EVENING
     Route: 065
     Dates: start: 2012
  6. LANTUS [Concomitant]
     Active Substance: INSULIN GLARGINE
     Dosage: UNK, UNKNOWN
     Route: 065
  7. HUMALOG [Suspect]
     Active Substance: INSULIN LISPRO
     Dosage: 15 U, BID
     Route: 065
     Dates: start: 2012

REACTIONS (1)
  - Incorrect dose administered [Unknown]
